FAERS Safety Report 20345706 (Version 3)
Quarter: 2022Q1

REPORT INFORMATION
  Report Type: Other
  Country: US (occurrence: None)
  Receive Date: 20220118
  Receipt Date: 20220216
  Transmission Date: 20220423
  Serious: Yes (Hospitalization)
  Sender: FDA-Public Use
  Company Number: US-ROCHE-3000261

PATIENT
  Sex: Female
  Weight: 99.880 kg

DRUGS (6)
  1. XOLAIR [Suspect]
     Active Substance: OMALIZUMAB
     Indication: Urticaria chronic
     Dosage: 1 INJECTION EACH ARM ;ONGOING: YES
     Route: 058
     Dates: start: 201710
  2. XOLAIR [Suspect]
     Active Substance: OMALIZUMAB
  3. XOLAIR [Suspect]
     Active Substance: OMALIZUMAB
     Indication: Angioedema
  4. XOLAIR [Suspect]
     Active Substance: OMALIZUMAB
  5. XOLAIR [Suspect]
     Active Substance: OMALIZUMAB
     Indication: Idiopathic urticaria
  6. XOLAIR [Suspect]
     Active Substance: OMALIZUMAB

REACTIONS (6)
  - Anaphylactic reaction [Unknown]
  - Fear of injection [Unknown]
  - Illness [Unknown]
  - Pruritus [Unknown]
  - Depression [Unknown]
  - Post-traumatic stress disorder [Unknown]
